FAERS Safety Report 4708344-0 (Version None)
Quarter: 2005Q3

REPORT INFORMATION
  Report Type: 
  Country: None (occurrence: None)
  Receive Date: 20050705
  Receipt Date: 20050705
  Transmission Date: 20060218
  Serious: No
  Sender: FDA-Public Use
  Company Number: None

PATIENT
  Age: 72 Year
  Sex: Male
  Weight: 60 kg

DRUGS (5)
  1. NESIRITIDE 1.5 MG SLOE [Suspect]
     Indication: CARDIAC FAILURE CONGESTIVE
     Dosage: 0.5 MG 100 ML OVER 4 H IV
     Route: 042
     Dates: start: 20050627, end: 20050627
  2. EZETIMIDE [Concomitant]
  3. METOLAZONE [Concomitant]
  4. SPIRONOLACTONE [Concomitant]
  5. TORAEMIDE [Concomitant]

REACTIONS (1)
  - RENAL FAILURE [None]
